FAERS Safety Report 19134115 (Version 6)
Quarter: 2021Q2

REPORT INFORMATION
  Report Type: Report from Study
  Country: PL (occurrence: PL)
  Receive Date: 20210414
  Receipt Date: 20210623
  Transmission Date: 20210717
  Serious: Yes (Death, Hospitalization)
  Sender: FDA-Public Use
  Company Number: PL-EISAI MEDICAL RESEARCH-EC-2021-091042

PATIENT
  Age: 93 Year
  Sex: Female
  Weight: 41 kg

DRUGS (9)
  1. ISOPTIN [Concomitant]
     Active Substance: VERAPAMIL HYDROCHLORIDE
     Dates: start: 200001
  2. KALIPOZ PROLONGATUM [Concomitant]
     Active Substance: POTASSIUM CHLORIDE
     Dates: start: 200001
  3. PEMBROLIZUMAB. [Suspect]
     Active Substance: PEMBROLIZUMAB
     Indication: ENDOMETRIAL CANCER
     Route: 041
     Dates: start: 20210317, end: 20210317
  4. METIZOL [Concomitant]
     Dates: start: 200001, end: 20210413
  5. EUTHYROX [Concomitant]
     Active Substance: LEVOTHYROXINE SODIUM
     Dates: start: 200001, end: 20210403
  6. EFFOX [Concomitant]
     Active Substance: ISOSORBIDE MONONITRATE
     Dates: start: 200001
  7. SETAL [Concomitant]
     Dates: start: 200001, end: 20210403
  8. LENVATINIB [Suspect]
     Active Substance: LENVATINIB
     Indication: ENDOMETRIAL CANCER
     Route: 048
     Dates: start: 20210317, end: 20210328
  9. OXYCONTIN [Concomitant]
     Active Substance: OXYCODONE HYDROCHLORIDE
     Dates: start: 20210331

REACTIONS (1)
  - Ischaemia [Recovered/Resolved with Sequelae]

NARRATIVE: CASE EVENT DATE: 20210403
